FAERS Safety Report 5274101-2 (Version None)
Quarter: 2007Q1

REPORT INFORMATION
  Report Type: 
  Country: None (occurrence: None)
  Receive Date: 20070323
  Receipt Date: 20070313
  Transmission Date: 20070707
  Serious: Yes (Other)
  Sender: FDA-Public Use
  Company Number: PHMT2007CA00822

PATIENT
  Age: 83 Year
  Sex: Male

DRUGS (1)
  1. MIACALCIN [Suspect]
     Indication: OSTEOPOROSIS
     Dosage: UNK, UNK
     Route: 045
     Dates: start: 20070304

REACTIONS (3)
  - APHAGIA [None]
  - HEMIPLEGIA [None]
  - VISUAL DISTURBANCE [None]
